FAERS Safety Report 7786717-X (Version None)
Quarter: 2011Q3

REPORT INFORMATION
  Report Type: 
  Country: None (occurrence: None)
  Receive Date: 20110929
  Receipt Date: 20110927
  Transmission Date: 20111222
  Serious: Yes (Life-Threatening)
  Sender: FDA-Public Use
  Company Number: DK-PFIZER INC-2011082778

PATIENT
  Age: 41 Year
  Sex: Female
  Weight: 58 kg

DRUGS (2)
  1. LYRICA [Suspect]
     Indication: PAIN
     Dosage: 50 MG + 150 MG
     Route: 048
     Dates: start: 20110110, end: 20110408
  2. FLUANXOL [Concomitant]
     Indication: MENTAL DISORDER
     Dosage: UNK
     Dates: start: 20110202, end: 20110404

REACTIONS (3)
  - RASH [None]
  - STEVENS-JOHNSON SYNDROME [None]
  - PIGMENTATION DISORDER [None]
